FAERS Safety Report 19373271 (Version 1)
Quarter: 2021Q2

REPORT INFORMATION
  Report Type: Spontaneous
  Country: TR (occurrence: TR)
  Receive Date: 20210604
  Receipt Date: 20210604
  Transmission Date: 20210717
  Serious: Yes (Other)
  Sender: FDA-Public Use
  Company Number: NVSC2019TR095593

PATIENT
  Age: 28 Year
  Sex: Male

DRUGS (2)
  1. BENVIDA [Suspect]
     Active Substance: LACOSAMIDE
     Indication: PRODUCT USED FOR UNKNOWN INDICATION
     Dosage: UNK
     Route: 065
  2. TRILEPTAL [Suspect]
     Active Substance: OXCARBAZEPINE
     Indication: EPILEPSY
     Dosage: TID (3X1)
     Route: 065

REACTIONS (3)
  - Coma [Unknown]
  - Product supply issue [Unknown]
  - Seizure [Unknown]
